FAERS Safety Report 4694025-9 (Version None)
Quarter: 2005Q2

REPORT INFORMATION
  Report Type: 
  Country: None (occurrence: None)
  Receive Date: 20050616
  Receipt Date: 20050605
  Transmission Date: 20051028
  Serious: Yes (Other)
  Sender: FDA-Public Use
  Company Number: 215202

PATIENT
  Age: 42 Year
  Sex: Male

DRUGS (1)
  1. NUTROPIN [Suspect]
     Indication: GROWTH HORMONE DEFICIENCY
     Dosage: UNK
     Route: 065

REACTIONS (3)
  - DISEASE RECURRENCE [None]
  - PITUITARY TUMOUR BENIGN [None]
  - VISUAL FIELD DEFECT [None]
